FAERS Safety Report 7692179-3 (Version None)
Quarter: 2011Q3

REPORT INFORMATION
  Report Type: 
  Country: None (occurrence: None)
  Receive Date: 20110818
  Receipt Date: 20110810
  Transmission Date: 20111222
  Serious: Yes (Life-Threatening)
  Sender: FDA-Public Use
  Company Number: PHHY2011FR70739

PATIENT
  Sex: Female

DRUGS (10)
  1. CLINDAMYCIN HCL [Suspect]
     Route: 042
     Dates: start: 20090726, end: 20090726
  2. BUPIVACAINE HCL [Concomitant]
     Indication: ANAESTHESIA
     Dates: start: 20090726, end: 20090726
  3. N-METHYL GENTAMYCINE [Concomitant]
     Dates: start: 20090726
  4. SYNTOCINON [Suspect]
     Route: 042
     Dates: start: 20090726, end: 20090726
  5. ALBUTEROL [Concomitant]
     Indication: ASTHMA
  6. MORPHINE [Concomitant]
     Route: 037
     Dates: start: 20090726, end: 20090726
  7. SUFENTANIL CITRATE [Concomitant]
     Route: 037
     Dates: start: 20090726, end: 20090726
  8. GENTAMYCIN-MP [Concomitant]
     Dosage: UNK
     Route: 042
     Dates: start: 20090626
  9. DESLORATADINE [Concomitant]
  10. MIFLONIL [Concomitant]
     Indication: ASTHMA

REACTIONS (4)
  - BRONCHOSPASM [None]
  - DYSPNOEA [None]
  - ANAPHYLACTIC REACTION [None]
  - OXYGEN SATURATION DECREASED [None]
